FAERS Safety Report 8229522-2 (Version None)
Quarter: 2012Q1

REPORT INFORMATION
  Report Type: 
  Country: None (occurrence: None)
  Receive Date: 20120322
  Receipt Date: 20120316
  Transmission Date: 20120608
  Serious: Yes (Hospitalization)
  Sender: FDA-Public Use
  Company Number: BR-PFIZER INC-2012070005

PATIENT
  Age: 65 Year
  Sex: Female

DRUGS (6)
  1. ENALAPRIL MALEATE [Concomitant]
     Dosage: UNK
  2. SOMALGIN [Concomitant]
     Dosage: UNK
  3. LIPITOR [Suspect]
     Dosage: 40 MG, 1X/DAY
     Route: 048
     Dates: start: 20110316
  4. ALDACTONE [Concomitant]
     Dosage: UNK
  5. COUMADIN [Concomitant]
  6. DIGOXIN [Concomitant]
     Dosage: UNK

REACTIONS (3)
  - VASCULAR GRAFT [None]
  - BRADYCARDIA [None]
  - FATIGUE [None]
